FAERS Safety Report 5968428-6 (Version None)
Quarter: 2008Q4

REPORT INFORMATION
  Report Type: 
  Country: None (occurrence: None)
  Receive Date: 20081126
  Receipt Date: 20081125
  Transmission Date: 20090506
  Serious: Yes (Death)
  Sender: FDA-Public Use
  Company Number: US-BRISTOL-MYERS SQUIBB COMPANY-14419766

PATIENT
  Sex: Male

DRUGS (2)
  1. PRAVACHOL [Suspect]
  2. MONOPRIL [Suspect]

REACTIONS (1)
  - DEATH [None]
